FAERS Safety Report 5761270-0 (Version None)
Quarter: 2008Q2

REPORT INFORMATION
  Report Type: 
  Country: None (occurrence: None)
  Receive Date: 20080606
  Receipt Date: 20080603
  Transmission Date: 20081010
  Serious: Yes (Other)
  Sender: FDA-Public Use
  Company Number: JP-BAYER-200810802BYL

PATIENT
  Age: 52 Year
  Sex: Male
  Weight: 67 kg

DRUGS (8)
  1. CIPROXAN-I.V. [Suspect]
     Indication: RESPIRATORY FAILURE
     Dosage: TOTAL DAILY DOSE: 600 MG
     Route: 041
     Dates: start: 20071226, end: 20071230
  2. MEYLON [Concomitant]
     Indication: DRUG USE FOR UNKNOWN INDICATION
     Route: 042
     Dates: start: 20071225, end: 20080104
  3. BOSMIN [Concomitant]
     Indication: DRUG USE FOR UNKNOWN INDICATION
     Route: 042
     Dates: start: 20071225, end: 20080104
  4. LASIX [Concomitant]
     Indication: DRUG USE FOR UNKNOWN INDICATION
     Route: 042
     Dates: start: 20071225, end: 20080104
  5. FAMOTIDINE [Concomitant]
     Indication: DRUG USE FOR UNKNOWN INDICATION
     Route: 042
     Dates: start: 20071225, end: 20080104
  6. PENTAGIN [Concomitant]
     Indication: DRUG USE FOR UNKNOWN INDICATION
     Route: 042
     Dates: start: 20071227, end: 20071228
  7. LEPETAN [Concomitant]
     Indication: DRUG USE FOR UNKNOWN INDICATION
     Route: 042
     Dates: start: 20071227, end: 20071228
  8. NONTHRON [Concomitant]
     Indication: DRUG USE FOR UNKNOWN INDICATION
     Route: 041
     Dates: start: 20071230, end: 20080104

REACTIONS (1)
  - WHITE BLOOD CELL COUNT DECREASED [None]
